FAERS Safety Report 10094866 (Version 1)
Quarter: 2014Q2

REPORT INFORMATION
  Report Type: Spontaneous
  Country: TR (occurrence: TR)
  Receive Date: 20140422
  Receipt Date: 20140422
  Transmission Date: 20141212
  Serious: Yes (Hospitalization)
  Sender: FDA-Public Use
  Company Number: TR-VERTEX PHARMACEUTICALS INC-2014-001968

PATIENT
  Age: 53 Year
  Sex: Male

DRUGS (6)
  1. INCIVO [Suspect]
     Indication: CHRONIC HEPATITIS C
     Dosage: 2250 MG, QD
     Route: 048
     Dates: start: 20130507, end: 20130729
  2. PEGINTERFERON ALFA 2A [Suspect]
     Indication: CHRONIC HEPATITIS C
     Dosage: 180 ?G, QW
     Route: 058
     Dates: start: 20130507
  3. RIBAVIRIN [Suspect]
     Indication: CHRONIC HEPATITIS C
     Dosage: 1200 MG, UNK
     Route: 048
     Dates: start: 20130507
  4. SERETIDE [Concomitant]
     Indication: ASTHMA
     Dosage: FLUTICASONE PROPIONATE, SALMETEROL XINAFOATE
     Route: 055
  5. SPIRIVA [Concomitant]
     Indication: ASTHMA
     Route: 055
  6. THEOPHYLLINE [Concomitant]
     Indication: ASTHMA
     Dosage: TEOKAP
     Route: 048

REACTIONS (1)
  - Neck mass [Recovered/Resolved]
